FAERS Safety Report 18260855 (Version 5)
Quarter: 2021Q1

REPORT INFORMATION
  Report Type: Spontaneous
  Country: JP (occurrence: JP)
  Receive Date: 20200914
  Receipt Date: 20210226
  Transmission Date: 20210419
  Serious: Yes (Hospitalization)
  Sender: FDA-Public Use
  Company Number: JP-TEVA-2020-JP-1828164

PATIENT
  Age: 8 Decade
  Sex: Female

DRUGS (16)
  1. TRERIEF [Concomitant]
     Active Substance: ZONISAMIDE
  2. NOURIAST [Concomitant]
     Active Substance: ISTRADEFYLLINE
  3. CARVEDILOL. [Concomitant]
     Active Substance: CARVEDILOL
  4. AZILECT [Suspect]
     Active Substance: RASAGILINE MESYLATE
     Indication: PARKINSON^S DISEASE
     Dosage: 1 MILLIGRAM DAILY;
     Route: 048
  5. DOPACOL [Concomitant]
     Active Substance: CARBIDOPA\LEVODOPA
  6. ENALAPRIL [Concomitant]
     Active Substance: ENALAPRIL
  7. AMLODIPINE [Concomitant]
     Active Substance: AMLODIPINE BESYLATE
  8. ELOBIXIBAT [Concomitant]
     Active Substance: ELOBIXIBAT
  9. RABEPRAZOLE SODIUM. [Concomitant]
     Active Substance: RABEPRAZOLE SODIUM
  10. MOSAPRIDE CITRATE [Concomitant]
     Active Substance: MOSAPRIDE CITRATE
  11. MIYA?BM [Concomitant]
     Active Substance: CLOSTRIDIUM BUTYRICUM SPORES STRAIN M-55
  12. ROSUVASTATIN. [Concomitant]
     Active Substance: ROSUVASTATIN
  13. NEUPRO [Concomitant]
     Active Substance: ROTIGOTINE
  14. GASCON [Concomitant]
     Active Substance: DIMETHICONE
  15. SODIUM PICOSULFATE [Concomitant]
     Active Substance: SODIUM PICOSULFATE
  16. LENDORMIN [Concomitant]
     Active Substance: BROTIZOLAM

REACTIONS (2)
  - Dyskinesia [Recovered/Resolved]
  - Gait disturbance [Unknown]

NARRATIVE: CASE EVENT DATE: 202008
